FAERS Safety Report 16624186 (Version 1)
Quarter: 2019Q3

REPORT INFORMATION
  Report Type: Spontaneous
  Country: US (occurrence: US)
  Receive Date: 20190611
  Receipt Date: 20190611
  Transmission Date: 20191004
  Serious: No
  Sender: FDA-Public Use
  Company Number: None

PATIENT
  Age: 69 Year
  Sex: Male

DRUGS (1)
  1. REPATHA [Suspect]
     Active Substance: EVOLOCUMAB
     Indication: ISCHAEMIC CARDIOMYOPATHY
     Route: 058
     Dates: start: 201905

REACTIONS (3)
  - Cough [None]
  - Fatigue [None]
  - Rhinorrhoea [None]
